FAERS Safety Report 9125984 (Version 1)
Quarter: 2013Q1

REPORT INFORMATION
  Report Type: Spontaneous
  Country: US (occurrence: US)
  Receive Date: 20130121
  Receipt Date: 20130121
  Transmission Date: 20140127
  Serious: No
  Sender: FDA-Public Use
  Company Number: US-B.I. PHARMACEUTICALS,INC./RIDGEFIELD-2013-BI-01365BP

PATIENT
  Age: 60 None
  Sex: Male
  Weight: 86 kg

DRUGS (14)
  1. PRADAXA [Suspect]
     Indication: ATRIAL FIBRILLATION
     Dosage: 150 MG
     Route: 048
     Dates: start: 201108
  2. WELLBUTRIN [Concomitant]
     Indication: DEPRESSION
     Dosage: 150 MG
     Route: 048
  3. SYMBICORT [Concomitant]
     Indication: PULMONARY ARTERIAL HYPERTENSION
     Route: 055
  4. RAPAFLO [Concomitant]
     Indication: PROSTATOMEGALY
     Dosage: 10 MG
     Route: 048
  5. TRICOR [Concomitant]
     Indication: BLOOD CHOLESTEROL INCREASED
     Dosage: 145 MG
     Route: 048
  6. SINGULAIR [Concomitant]
     Dosage: 10 MG
     Route: 048
  7. TRACLEER [Concomitant]
     Indication: PULMONARY ARTERIAL HYPERTENSION
     Dosage: 250 MG
     Route: 048
     Dates: start: 2003
  8. BUMEX [Concomitant]
     Indication: OEDEMA PERIPHERAL
     Dosage: 2.5 MG
     Route: 048
  9. ZETIA [Concomitant]
     Indication: BLOOD CHOLESTEROL INCREASED
     Dosage: 10 MG
     Route: 048
  10. NEXIUM [Concomitant]
     Indication: GASTROOESOPHAGEAL REFLUX DISEASE
     Dosage: 40 MG
     Route: 048
  11. REVATIO [Concomitant]
     Indication: PULMONARY ARTERIAL HYPERTENSION
     Dosage: 180 MG
     Route: 048
  12. LISINIPRIL/HCTZ [Concomitant]
     Indication: HYPERTENSION
     Route: 048
     Dates: start: 2009, end: 20130114
  13. BUSPAR [Concomitant]
     Indication: ANXIETY
     Dosage: 10 MG
     Route: 048
  14. ASPIRIN [Concomitant]
     Dosage: 81 MG
     Route: 048

REACTIONS (4)
  - Syncope [Not Recovered/Not Resolved]
  - Dizziness [Not Recovered/Not Resolved]
  - Cough [Not Recovered/Not Resolved]
  - Nausea [Not Recovered/Not Resolved]
